FAERS Safety Report 8525334 (Version 7)
Quarter: 2014Q3

REPORT INFORMATION
  Report Type: Spontaneous
  Country: US (occurrence: US)
  Receive Date: 20120423
  Receipt Date: 20140721
  Transmission Date: 20150326
  Serious: Yes (Life-Threatening, Hospitalization, Disabling, Other)
  Sender: FDA-Public Use
  Company Number: US-AMGEN-USASP2012024760

PATIENT
  Age: 64 Year
  Sex: Male
  Weight: 65.99 kg

DRUGS (18)
  1. FUROSEMIDE. [Concomitant]
     Active Substance: FUROSEMIDE
     Dosage: 40 MG, UNK
  2. SPIRONOLACTONE. [Concomitant]
     Active Substance: SPIRONOLACTONE
     Dosage: 100 MG, QD
  3. INTERFERON NOS [Concomitant]
     Active Substance: INTERFERON
     Dosage: UNK
     Dates: start: 201109, end: 201201
  4. RIBAVIRIN. [Concomitant]
     Active Substance: RIBAVIRIN
     Dosage: UNK
     Dates: start: 201109, end: 201201
  5. LACTULOSE. [Concomitant]
     Active Substance: LACTULOSE
     Dosage: 15 ML, TID
  6. ZINC SULFATE [Concomitant]
     Active Substance: ZINC SULFATE\ZINC SULFATE ANHYDROUS
     Dosage: 220 MG, BID
  7. TRIAMCINOLONE [Concomitant]
     Active Substance: TRIAMCINOLONE
     Dosage: UNK UNK, QID
  8. ALBUTEROL. [Concomitant]
     Active Substance: ALBUTEROL
     Dosage: UNK
  9. CHOLESTYRAMINE. [Concomitant]
     Active Substance: CHOLESTYRAMINE
     Dosage: UNK
  10. CARAFATE [Concomitant]
     Active Substance: SUCRALFATE
     Dosage: 1 G, BID
  11. PULMICORT TURBUHALER [Concomitant]
     Active Substance: BUDESONIDE
     Dosage: 180 MUG, BID
  12. ACIPHEX [Concomitant]
     Active Substance: RABEPRAZOLE SODIUM
     Dosage: 20 MG, QD
  13. TELAPREVIR [Concomitant]
     Active Substance: TELAPREVIR
     Dosage: UNK
     Dates: start: 201109, end: 201201
  14. AMBIEN [Concomitant]
     Active Substance: ZOLPIDEM TARTRATE
     Dosage: 10 MG, QD
  15. PROCRIT [Suspect]
     Active Substance: ERYTHROPOIETIN
     Indication: ANAEMIA
     Dosage: 40000 IU, QWK
     Route: 058
     Dates: start: 201111, end: 20120322
  16. INSULIN [Concomitant]
     Active Substance: INSULIN NOS
     Dosage: 24 IU, UNK
  17. FLOMAX [Concomitant]
     Active Substance: TAMSULOSIN HYDROCHLORIDE
     Dosage: UNK
  18. TAMSULOSIN [Concomitant]
     Active Substance: TAMSULOSIN
     Dosage: 0.8 MG, QD

REACTIONS (13)
  - Aplasia pure red cell [Recovered/Resolved]
  - Therapeutic response decreased [Unknown]
  - Anti-erythropoietin antibody positive [Unknown]
  - Hepatic encephalopathy [Unknown]
  - Portal hypertension [Unknown]
  - Varices oesophageal [Unknown]
  - Streptococcal bacteraemia [Unknown]
  - Endocarditis [Unknown]
  - Hepatitis C [Unknown]
  - Splenomegaly [Unknown]
  - Peritonitis bacterial [Unknown]
  - Anaemia [Not Recovered/Not Resolved]
  - Reticulocytopenia [Not Recovered/Not Resolved]

NARRATIVE: CASE EVENT DATE: 201202
